FAERS Safety Report 7268428-2 (Version None)
Quarter: 2011Q1

REPORT INFORMATION
  Report Type: 
  Country: None (occurrence: None)
  Receive Date: 20110201
  Receipt Date: 20110125
  Transmission Date: 20110831
  Serious: Yes (Other)
  Sender: FDA-Public Use
  Company Number: US-PFIZER INC-2011018629

PATIENT
  Sex: Female

DRUGS (2)
  1. TOVIAZ [Suspect]
  2. DETROL [Suspect]

REACTIONS (2)
  - CALCULUS BLADDER [None]
  - URINARY TRACT INFECTION [None]
